FAERS Safety Report 7657509-7 (Version None)
Quarter: 2011Q3

REPORT INFORMATION
  Report Type: 
  Country: None (occurrence: None)
  Receive Date: 20110804
  Receipt Date: 20110726
  Transmission Date: 20111222
  Serious: Yes (Hospitalization)
  Sender: FDA-Public Use
  Company Number: FR-ASTRAZENECA-2011SE45351

PATIENT
  Age: 62 Year
  Sex: Male
  Weight: 73 kg

DRUGS (4)
  1. FORLAX [Concomitant]
     Dosage: AS REQUIRED
  2. IRESSA [Suspect]
     Indication: LUNG ADENOCARCINOMA
     Route: 048
     Dates: start: 20110512, end: 20110622
  3. OXYCONTIN [Concomitant]
  4. COTRIATEC [Concomitant]
     Dosage: LONG LASTING

REACTIONS (1)
  - CYTOLYTIC HEPATITIS [None]
